FAERS Safety Report 10615066 (Version 1)
Quarter: 2014Q4

REPORT INFORMATION
  Report Type: Spontaneous
  Country: RU (occurrence: RU)
  Receive Date: 20141201
  Receipt Date: 20141201
  Transmission Date: 20150529
  Serious: Yes (Other)
  Sender: FDA-Public Use
  Company Number: PHHY2014RU154185

PATIENT
  Sex: Male

DRUGS (2)
  1. ZOLEDRONATE [Suspect]
     Active Substance: ZOLEDRONIC ACID
     Indication: PRODUCT USED FOR UNKNOWN INDICATION
     Route: 065
  2. ZOMETA [Suspect]
     Active Substance: ZOLEDRONIC ACID
     Indication: RENAL CANCER METASTATIC
     Dosage: 4 MG, MONTHLY
     Route: 042

REACTIONS (1)
  - Osteonecrosis of jaw [Recovered/Resolved]
